FAERS Safety Report 15566593 (Version 1)
Quarter: 2018Q4

REPORT INFORMATION
  Report Type: Spontaneous
  Country: US (occurrence: US)
  Receive Date: 20181029
  Receipt Date: 20181029
  Transmission Date: 20190205
  Serious: Yes (Other)
  Sender: FDA-Public Use
  Company Number: None

PATIENT
  Age: 51 Year
  Sex: Female
  Weight: 90 kg

DRUGS (1)
  1. METHYLPREDNISOLONE AND LIDOCAINE [Suspect]
     Active Substance: LIDOCAINE\METHYLPREDNISOLONE
     Indication: ARTHRITIS
     Route: 014
     Dates: start: 20181022

REACTIONS (4)
  - Product compounding quality issue [None]
  - Swelling [None]
  - Pain [None]
  - Condition aggravated [None]

NARRATIVE: CASE EVENT DATE: 20181022
